FAERS Safety Report 10011291 (Version 2)
Quarter: 2014Q2

REPORT INFORMATION
  Report Type: Spontaneous
  Country: US (occurrence: US)
  Receive Date: 20140314
  Receipt Date: 20140505
  Transmission Date: 20141212
  Serious: Yes (Hospitalization)
  Sender: FDA-Public Use
  Company Number: US-JNJFOC-20140305770

PATIENT
  Sex: Male
  Weight: 46.7 kg

DRUGS (5)
  1. REMICADE [Suspect]
     Indication: CROHN^S DISEASE
     Dosage: 4TH DOSE
     Route: 042
     Dates: start: 20140415
  2. REMICADE [Suspect]
     Indication: CROHN^S DISEASE
     Route: 042
  3. REMICADE [Suspect]
     Indication: CROHN^S DISEASE
     Dosage: 3RD INDUCTION DOSE
     Route: 042
     Dates: start: 20140306
  4. REMICADE [Suspect]
     Indication: CROHN^S DISEASE
     Dosage: 3RD INDUCTION DOSE
     Route: 042
     Dates: start: 20131226
  5. ASACOL [Concomitant]
     Indication: INFLAMMATORY BOWEL DISEASE
     Dosage: SINCE 1.5 YEARS
     Route: 065

REACTIONS (1)
  - Acute psychosis [Not Recovered/Not Resolved]
